FAERS Safety Report 14334445 (Version 2)
Quarter: 2018Q1

REPORT INFORMATION
  Report Type: Spontaneous
  Country: FR (occurrence: FR)
  Receive Date: 20171228
  Receipt Date: 20180111
  Transmission Date: 20180509
  Serious: Yes (Other)
  Sender: FDA-Public Use
  Company Number: FR-SA-2017SA267145

PATIENT
  Age: 25 Year
  Sex: Female

DRUGS (8)
  1. ANAGRELIDE. [Suspect]
     Active Substance: ANAGRELIDE HYDROCHLORIDE
     Indication: ESSENTIAL THROMBOCYTHAEMIA
     Route: 065
  2. HYDROXYUREA. [Concomitant]
     Active Substance: HYDROXYUREA
  3. TINZAPARIN [Suspect]
     Active Substance: TINZAPARIN
     Route: 065
  4. INTERFERON ALFA NOS [Concomitant]
     Active Substance: INTERFERON ALFA-2A OR INTERFERON ALFA-2B
     Route: 065
  5. ENOXAPARIN SODIUM. [Suspect]
     Active Substance: ENOXAPARIN SODIUM
     Route: 065
  6. FLUINDIONE [Suspect]
     Active Substance: FLUINDIONE
     Dosage: 20 MG HALF TO THREE-QUARTER PILL
     Route: 065
  7. ASPIRIN. [Suspect]
     Active Substance: ASPIRIN
     Indication: ESSENTIAL THROMBOCYTHAEMIA
     Route: 065
  8. HEPARIN [Concomitant]
     Active Substance: HEPARIN SODIUM
     Indication: BUDD-CHIARI SYNDROME

REACTIONS (6)
  - Maternal exposure during pregnancy [Unknown]
  - Vaginal haemorrhage [Unknown]
  - Abortion spontaneous [Unknown]
  - Anembryonic gestation [Unknown]
  - Product use in unapproved indication [Unknown]
  - Off label use [Unknown]
